FAERS Safety Report 16865815 (Version 1)
Quarter: 2019Q3

REPORT INFORMATION
  Report Type: Spontaneous
  Country: US (occurrence: US)
  Receive Date: 20190930
  Receipt Date: 20190930
  Transmission Date: 20191005
  Serious: No
  Sender: FDA-Public Use
  Company Number: US-ALLERGAN-1853543US

PATIENT
  Sex: Female

DRUGS (4)
  1. VIIBRYD [Concomitant]
     Active Substance: VILAZODONE HYDROCHLORIDE
     Dosage: 40 MG, QD
     Route: 048
     Dates: start: 2017
  2. VRAYLAR [Suspect]
     Active Substance: CARIPRAZINE
     Dosage: 3 MG, QD
     Route: 048
     Dates: start: 20181107
  3. VRAYLAR [Suspect]
     Active Substance: CARIPRAZINE
     Indication: MENTAL DISORDER
     Dosage: 3 MG, QD
     Route: 048
     Dates: start: 20181113
  4. VRAYLAR [Suspect]
     Active Substance: CARIPRAZINE
     Dosage: 1.5 MG, QD
     Route: 048
     Dates: start: 201810

REACTIONS (5)
  - Panic attack [Recovering/Resolving]
  - Post-traumatic stress disorder [Unknown]
  - Product dose omission [Unknown]
  - Anxiety [Not Recovered/Not Resolved]
  - Lacrimation decreased [Not Recovered/Not Resolved]

NARRATIVE: CASE EVENT DATE: 20181107
